FAERS Safety Report 5771048-X (Version None)
Quarter: 2008Q2

REPORT INFORMATION
  Report Type: 
  Country: None (occurrence: None)
  Receive Date: 20080613
  Receipt Date: 20080527
  Transmission Date: 20081010
  Serious: No
  Sender: FDA-Public Use
  Company Number: US-ABBOTT-08P-163-0453587-00

PATIENT
  Sex: Female

DRUGS (2)
  1. HUMIRA [Suspect]
     Indication: ANKYLOSING SPONDYLITIS
     Route: 058
     Dates: start: 20080201
  2. ANTIHISTAMINES [Suspect]
     Indication: INJECTION SITE NODULE
     Route: 048
     Dates: start: 20080501, end: 20080501

REACTIONS (4)
  - INJECTION SITE BRUISING [None]
  - INJECTION SITE NODULE [None]
  - INJECTION SITE PRURITUS [None]
  - PRURITUS [None]
